FAERS Safety Report 5277144-8 (Version None)
Quarter: 2007Q1

REPORT INFORMATION
  Report Type: 
  Country: None (occurrence: None)
  Receive Date: 20070322
  Receipt Date: 20070322
  Transmission Date: 20070707
  Serious: Yes (Other)
  Sender: FDA-Public Use
  Company Number: None

PATIENT
  Age: 65 Year
  Sex: Male
  Weight: 99.7913 kg

DRUGS (2)
  1. ALKA-SELTZER PLUS COLD ORANGE Z BAYER HEALTHCARE [Suspect]
     Indication: NASAL CONGESTION
     Dosage: 2 TABLETS EVERY 4 HOURS PO
     Route: 048
  2. ALKA-SELTZER PLUS COLD ORANGE Z BAYER HEALTHCARE [Suspect]
     Indication: NASOPHARYNGITIS
     Dosage: 2 TABLETS EVERY 4 HOURS PO
     Route: 048

REACTIONS (3)
  - CORONARY ARTERY DISEASE [None]
  - PHARMACEUTICAL PRODUCT COMPLAINT [None]
  - REACTION TO FOOD ADDITIVE [None]
